FAERS Safety Report 9919077 (Version 1)
Quarter: 2014Q1

REPORT INFORMATION
  Report Type: Spontaneous
  Country: US (occurrence: US)
  Receive Date: 20140224
  Receipt Date: 20140224
  Transmission Date: 20141002
  Serious: No
  Sender: FDA-Public Use
  Company Number: US-PFIZER INC-2014051859

PATIENT
  Age: 82 Year
  Sex: Male
  Weight: 55.33 kg

DRUGS (5)
  1. LYRICA [Suspect]
     Indication: POST HERPETIC NEURALGIA
     Dosage: 50 MG, 2X/DAY
     Route: 048
     Dates: start: 201311, end: 201312
  2. LYRICA [Suspect]
     Dosage: 100 MG (2 CAPSULES OF 50MG), 2X/DAY
     Route: 048
     Dates: start: 201312, end: 201312
  3. LYRICA [Suspect]
     Dosage: 150 MG (3 CAPSULES OF 50MG), 2X/DAY
     Route: 048
     Dates: start: 201312, end: 201401
  4. LYRICA [Suspect]
     Dosage: 200 MG (4 CAPSULES OF 50MG), 2X/DAY
     Route: 048
     Dates: start: 201401, end: 201402
  5. LYRICA [Suspect]
     Dosage: 100 MG (2 CAPSULES OF 50MG), 2X/DAY
     Route: 048
     Dates: start: 201402

REACTIONS (2)
  - Drug ineffective [Unknown]
  - Swelling [Unknown]
